FAERS Safety Report 21914497 (Version 5)
Quarter: 2023Q2

REPORT INFORMATION
  Report Type: Report from Study
  Country: US (occurrence: US)
  Receive Date: 20230126
  Receipt Date: 20230610
  Transmission Date: 20230722
  Serious: Yes (Other)
  Sender: FDA-Public Use
  Company Number: US-002147023-NVSC2023US012169

PATIENT
  Sex: Female

DRUGS (25)
  1. KESIMPTA [Suspect]
     Active Substance: OFATUMUMAB
     Indication: Multiple sclerosis
     Dosage: 1 DOSAGE FORM, QMO (1 INJECTION PER MONTH)
     Route: 058
     Dates: start: 20210805
  2. KESIMPTA [Suspect]
     Active Substance: OFATUMUMAB
     Indication: Relapsing-remitting multiple sclerosis
  3. AMLODIPINE BESYLATE\BENAZEPRIL HYDROCHLORIDE [Concomitant]
     Active Substance: AMLODIPINE BESYLATE\BENAZEPRIL HYDROCHLORIDE
     Indication: Product used for unknown indication
     Dosage: 1 DOSAGE FORM, QD (5 TO 10 MG ONCE A DAY)
     Route: 065
  4. BENADRYL [Concomitant]
     Active Substance: DIPHENHYDRAMINE HYDROCHLORIDE
     Indication: Product used for unknown indication
     Dosage: 50 MG, PRN (1 CAPSULE, AS NEEDED)
     Route: 065
  5. VITAMIN B12 [Concomitant]
     Active Substance: CYANOCOBALAMIN
     Indication: Product used for unknown indication
     Dosage: 1 ML, QMO (INJECT 1ML UNDER THE SKIN ONCE A MONTH)
     Route: 065
  6. FARXIGA [Concomitant]
     Active Substance: DAPAGLIFLOZIN PROPANEDIOL
     Indication: Product used for unknown indication
     Dosage: 10 MG, QD (1 TABLET ONCE A DAY)
     Route: 065
  7. HYDROXYZINE HYDROCHLORIDE [Concomitant]
     Active Substance: HYDROXYZINE HYDROCHLORIDE
     Indication: Product used for unknown indication
     Dosage: 25 MG, PRN (1 TABLET AS NEEDED)
     Route: 065
  8. JANUVIA [Concomitant]
     Active Substance: SITAGLIPTIN PHOSPHATE
     Indication: Product used for unknown indication
     Dosage: 100 MG, QD (1 TABLET ONCE A DAY)
     Route: 065
  9. LAMOTRIGINE [Concomitant]
     Active Substance: LAMOTRIGINE
     Indication: Product used for unknown indication
     Dosage: 25 MG, BID (TAKE 2 TABLETS BY MOUTH TWICE DAILY)
     Route: 048
  10. LINZESS [Concomitant]
     Active Substance: LINACLOTIDE
     Indication: Product used for unknown indication
     Dosage: 145 UG, QD (TAKE 1 CAPSULE BY MOUTH EVERYDAY)
     Route: 048
  11. LOSARTAN [Concomitant]
     Active Substance: LOSARTAN
     Indication: Product used for unknown indication
     Dosage: 50 MG, BID (1 TABLET TWICE A DAY)
     Route: 065
  12. LUNESTA [Concomitant]
     Active Substance: ESZOPICLONE
     Indication: Product used for unknown indication
     Dosage: 2 MG, QHS (1 TABLET)
     Route: 048
  13. LUNESTA [Concomitant]
     Active Substance: ESZOPICLONE
     Dosage: 2 MG, QHS (1 TABLET)
     Route: 048
  14. MARINOL [Concomitant]
     Active Substance: DRONABINOL
     Indication: Product used for unknown indication
     Dosage: 5 MG, TID (1 CAPSULE THREE TIMES A DAY)
     Route: 065
  15. MECLIZINE [Concomitant]
     Active Substance: MECLIZINE HYDROCHLORIDE
     Indication: Product used for unknown indication
     Dosage: 25 MG, TID (TAKE 1 TABLET BY MOUTH 3 TIMES A DAY)
     Route: 048
  16. MELOXICAM [Concomitant]
     Active Substance: MELOXICAM
     Indication: Product used for unknown indication
     Dosage: 15 MG, QD (1 TABLET ONCE A DAY)
     Route: 065
  17. MONTELUKAST [Concomitant]
     Active Substance: MONTELUKAST SODIUM
     Indication: Product used for unknown indication
     Dosage: 10 MG, QD (1 TABLET ONCE A DAY)
     Route: 065
  18. NEXIUM [Concomitant]
     Active Substance: ESOMEPRAZOLE MAGNESIUM
     Indication: Product used for unknown indication
     Dosage: 40 MG, BID (1 CAPSULE)
     Route: 065
  19. OMEPRAZOLE [Concomitant]
     Active Substance: OMEPRAZOLE
     Indication: Product used for unknown indication
     Dosage: 40 MG, BID (1 CAPSULE TWICE A DAY)
     Route: 065
  20. PRAMIPEXOLE [Concomitant]
     Active Substance: PRAMIPEXOLE
     Indication: Product used for unknown indication
     Dosage: 1.5 MG, PRN (TAKE 1 TABLET BY MOUTH EVERY 2 TO 3 HOURS AS NEEDED)
     Route: 048
  21. PROVIGIL [Concomitant]
     Active Substance: MODAFINIL
     Indication: Product used for unknown indication
     Dosage: 100 MG, QD (HALF TABLET)
     Route: 048
  22. ROSUVASTATIN [Concomitant]
     Active Substance: ROSUVASTATIN
     Indication: Product used for unknown indication
     Dosage: 5 MG, QD (1 TABLET ONCE A DAY)
     Route: 065
  23. ZYRTEC [Concomitant]
     Active Substance: CETIRIZINE HYDROCHLORIDE
     Indication: Product used for unknown indication
     Dosage: 10 MG, BID (1 CAPSULE TWICE A DAY)
     Route: 065
  24. SERTRALINE HYDROCHLORIDE [Concomitant]
     Active Substance: SERTRALINE HYDROCHLORIDE
     Indication: Product used for unknown indication
     Dosage: 50 MG, QD (1 TABLET ONCE A DAY)
     Route: 065
  25. MODAFINIL [Concomitant]
     Active Substance: MODAFINIL
     Indication: Product used for unknown indication
     Dosage: UNK
     Route: 065

REACTIONS (22)
  - Deafness unilateral [Unknown]
  - Sleep disorder [Unknown]
  - Vomiting [Unknown]
  - Weight increased [Not Recovered/Not Resolved]
  - Memory impairment [Unknown]
  - Fatigue [Unknown]
  - Balance disorder [Unknown]
  - Dizziness [Unknown]
  - Depression [Unknown]
  - Vision blurred [Unknown]
  - Insomnia [Unknown]
  - Muscular weakness [Unknown]
  - Headache [Unknown]
  - Pain in extremity [Unknown]
  - Erythema [Unknown]
  - Dry skin [Unknown]
  - Rash [Unknown]
  - Middle ear effusion [Unknown]
  - COVID-19 [Unknown]
  - Nausea [Unknown]
  - Lung disorder [Unknown]
  - Dyspnoea [Unknown]
